FAERS Safety Report 14180975 (Version 1)
Quarter: 2017Q4

REPORT INFORMATION
  Report Type: Spontaneous
  Country: US (occurrence: None)
  Receive Date: 20171110
  Receipt Date: 20171110
  Transmission Date: 20180321
  Serious: Yes (Hospitalization, Congenital Anomaly)
  Sender: FDA-Public Use
  Company Number: None

PATIENT
  Sex: Male

DRUGS (1)
  1. H.P. ACTHAR [Suspect]
     Active Substance: CORTICOTROPIN
     Indication: STATUS EPILEPTICUS
     Route: 030
     Dates: start: 201710

REACTIONS (3)
  - Peripheral coldness [None]
  - Heart rate decreased [None]
  - Abdominal discomfort [None]
